FAERS Safety Report 20721072 (Version 4)
Quarter: 2022Q2

REPORT INFORMATION
  Report Type: Spontaneous
  Country: NZ (occurrence: NZ)
  Receive Date: 20220418
  Receipt Date: 20220603
  Transmission Date: 20220721
  Serious: Yes (Death, Hospitalization, Other)
  Sender: FDA-Public Use
  Company Number: NZ-NOVARTISPH-NVSC2022NZ082754

PATIENT
  Age: 24 Year
  Sex: Male

DRUGS (31)
  1. LIORESAL [Suspect]
     Active Substance: BACLOFEN
     Indication: Muscle spasticity
     Dosage: UNK (PER CONTINUOUS INFUSION VIA A SYNCHROMED II PUMP)
     Route: 037
     Dates: start: 20160202
  2. LIORESAL [Suspect]
     Active Substance: BACLOFEN
     Dosage: UNK, INCREASED BY 10%
     Route: 065
     Dates: start: 202112
  3. ROCURONIUM BROMIDE [Suspect]
     Active Substance: ROCURONIUM BROMIDE
     Indication: Product used for unknown indication
     Dosage: UNK
     Route: 042
  4. DEXMEDETOMIDINE [Concomitant]
     Active Substance: DEXMEDETOMIDINE
     Indication: Product used for unknown indication
     Dosage: UNK
     Route: 065
  5. BENZTROPINE [Concomitant]
     Active Substance: BENZTROPINE
     Indication: Product used for unknown indication
     Dosage: 2 MG, TID (1 MG VIA PEG (7AM, 2PM AND 9 PM)
     Route: 065
  6. DOCUSATE SODIUM [Concomitant]
     Active Substance: DOCUSATE SODIUM
     Indication: Product used for unknown indication
     Dosage: 1 DOSAGE FORM (50 MG+80 MG), (7 AM AND 9 PM)
     Route: 048
  7. TETRABENAZINE [Concomitant]
     Active Substance: TETRABENAZINE
     Indication: Product used for unknown indication
     Dosage: 25 MG, TID (7AM, 2 PM AND 9 PM)
     Route: 048
  8. CLONIDINE [Concomitant]
     Active Substance: CLONIDINE
     Indication: Product used for unknown indication
     Dosage: 1 DOSAGE FORM, QW (200 MICROGRAM/24 HOURS PATCH, APPLY 1 PATCH AT THE SAME TIME EACH WEEK ON TUESDAY
     Route: 065
  9. VALPROATE SODIUM [Concomitant]
     Active Substance: VALPROATE SODIUM
     Indication: Product used for unknown indication
     Dosage: UNK UNK, BID (ORAL LIQUID AT 12.5 ML VIA PEG IN THE MORNING AND 15ML VIA PEG AT NIGHT)
     Route: 048
  10. VALPROATE SODIUM [Concomitant]
     Active Substance: VALPROATE SODIUM
     Dosage: UNK (200/5 MG)
     Route: 065
  11. DIAZEPAM [Concomitant]
     Active Substance: DIAZEPAM
     Indication: Product used for unknown indication
     Dosage: 5 MG, BID (5MG VIA PEG (7AM AND 5 PM)
     Route: 065
  12. DIAZEPAM [Concomitant]
     Active Substance: DIAZEPAM
     Dosage: 10 MG, BID (10MG VIA PEG AT 12 PM AND 9 PM)
     Route: 065
  13. POLYETHYLENE GLYCOL 3350 [Concomitant]
     Active Substance: POLYETHYLENE GLYCOL 3350
     Indication: Product used for unknown indication
     Dosage: 3 DOSAGE FORM, BID (DISSOLVE 1 SACHET IN 250 ML OF WATER, GIVE VIA PEG IN MORNING AND 2 SACHETS AT N
     Route: 065
  14. IBUPROFEN [Concomitant]
     Active Substance: IBUPROFEN
     Indication: Product used for unknown indication
     Dosage: 20 ML, TID (ORAL LIQUID AT 20 ML VIA PEG 3X/DAY AS NEEDED)
     Route: 048
  15. IBUPROFEN [Concomitant]
     Active Substance: IBUPROFEN
     Dosage: UNK (100/5 MG)
     Route: 065
  16. HALOPERIDOL [Concomitant]
     Active Substance: HALOPERIDOL
     Indication: Product used for unknown indication
     Dosage: 2.5 MG, Q6H, AS REQUIRED
     Route: 030
  17. HALOPERIDOL [Concomitant]
     Active Substance: HALOPERIDOL
     Dosage: UNK (AT 10 AM)
     Route: 030
  18. HALOPERIDOL [Concomitant]
     Active Substance: HALOPERIDOL
     Dosage: 5 MG
     Route: 065
  19. DIAZEPAM [Concomitant]
     Active Substance: DIAZEPAM
     Indication: Product used for unknown indication
     Dosage: UNK (ONE DOSE OF DIAZEPAM AT 6 A.M. AND REGULAR MEDS AT 9 A.M, FUTHER DOSE AT 10 A.M.)
     Route: 042
  20. DIAZEPAM [Concomitant]
     Active Substance: DIAZEPAM
     Dosage: UNK, PRN (LAST DIAZEPAM AS NEEDED WAS 2 WEEKS AGO (TUESDAY, PRN DIAZEPAM NEEDED ABOUT FORTNIGHTLY)
     Route: 065
  21. DIAZEPAM [Concomitant]
     Active Substance: DIAZEPAM
     Dosage: UNK (PEG DIAZEPAM 5 MG 14:30)
     Route: 065
  22. DANTROLENE [Concomitant]
     Active Substance: DANTROLENE
     Indication: Product used for unknown indication
     Dosage: UNK
     Route: 042
  23. ACETAMINOPHEN [Concomitant]
     Active Substance: ACETAMINOPHEN
     Indication: Product used for unknown indication
     Dosage: UNK (AT 10:30AM)
     Route: 065
  24. BENZTROPINE [Concomitant]
     Active Substance: BENZTROPINE
     Indication: Product used for unknown indication
     Dosage: UNK (AT 11:00 AM)
     Route: 030
  25. BENZTROPINE [Concomitant]
     Active Substance: BENZTROPINE
     Dosage: 1 MG (15:00)
     Route: 065
  26. MIDAZOLAM [Concomitant]
     Active Substance: MIDAZOLAM
     Indication: Product used for unknown indication
     Dosage: 10 MG (10 MG X 1, 5 MG X 2)
     Route: 030
  27. MIDAZOLAM [Concomitant]
     Active Substance: MIDAZOLAM
     Dosage: 5 UNK
     Route: 065
  28. FENTANYL [Concomitant]
     Active Substance: FENTANYL
     Indication: Product used for unknown indication
     Dosage: UNK
     Route: 065
  29. KETAMINE [Concomitant]
     Active Substance: KETAMINE
     Indication: Product used for unknown indication
     Dosage: UNK
     Route: 065
  30. METARAMINOL [Concomitant]
     Active Substance: METARAMINOL
     Indication: Product used for unknown indication
     Dosage: UNK
     Route: 065
  31. EPINEPHRINE [Concomitant]
     Active Substance: EPINEPHRINE
     Indication: Product used for unknown indication
     Dosage: UNK
     Route: 065

REACTIONS (6)
  - Anaphylactic reaction [Fatal]
  - Autonomic nervous system imbalance [Fatal]
  - Drug withdrawal syndrome [Fatal]
  - Dystonia [Unknown]
  - Oropharyngeal pain [Unknown]
  - Device failure [Unknown]

NARRATIVE: CASE EVENT DATE: 20200801
